FAERS Safety Report 14220431 (Version 1)
Quarter: 2017Q4

REPORT INFORMATION
  Report Type: Spontaneous
  Country: US (occurrence: US)
  Receive Date: 20171124
  Receipt Date: 20171124
  Transmission Date: 20180321
  Serious: Yes (Life-Threatening, Hospitalization)
  Sender: FDA-Public Use
  Company Number: PHEH2017US037654

PATIENT
  Sex: Female

DRUGS (2)
  1. ONDANSETRON [Suspect]
     Active Substance: ONDANSETRON
     Indication: PRODUCT USED FOR UNKNOWN INDICATION
     Route: 065
  2. GRISEOFULVIN. [Suspect]
     Active Substance: GRISEOFULVIN
     Indication: PRODUCT USED FOR UNKNOWN INDICATION
     Route: 065

REACTIONS (4)
  - Amnesia [Recovering/Resolving]
  - Blood potassium decreased [Recovering/Resolving]
  - Apparent death [Recovering/Resolving]
  - Hyponatraemia [Recovering/Resolving]
